FAERS Safety Report 8458934-7 (Version None)
Quarter: 2012Q2

REPORT INFORMATION
  Report Type: 
  Country: None (occurrence: None)
  Receive Date: 20120622
  Receipt Date: 20120614
  Transmission Date: 20120825
  Serious: Yes (Hospitalization, Other)
  Sender: FDA-Public Use
  Company Number: RU-BAYER-2012-058821

PATIENT
  Age: 38 Year
  Sex: Female

DRUGS (1)
  1. YAZ [Suspect]
     Dosage: UNK
     Route: 048
     Dates: start: 20080101

REACTIONS (4)
  - ADENOCARCINOMA OF THE CERVIX [None]
  - UTERINE CANCER [None]
  - GENITAL HAEMORRHAGE [None]
  - METASTASES TO OVARY [None]
